FAERS Safety Report 10101705 (Version 1)
Quarter: 2014Q2

REPORT INFORMATION
  Report Type: Spontaneous
  Country: US (occurrence: None)
  Receive Date: 20140423
  Receipt Date: 20140423
  Transmission Date: 20141212
  Serious: Yes (Life-Threatening)
  Sender: FDA-Public Use
  Company Number: None

PATIENT
  Age: 47 Year
  Sex: Female
  Weight: 54.43 kg

DRUGS (1)
  1. KENALOG 40 BRISTOL MYERS SQUIBB [Suspect]
     Indication: EPICONDYLITIS
     Dosage: INJECTION  SINGLE INJECTION  INTO ELBOW
     Dates: start: 20140115, end: 20140115

REACTIONS (5)
  - Injection site pain [None]
  - Skin exfoliation [None]
  - Pigmentation disorder [None]
  - Muscle atrophy [None]
  - Blood glucose increased [None]
